FAERS Safety Report 19776288 (Version 2)
Quarter: 2021Q3

REPORT INFORMATION
  Report Type: Spontaneous
  Country: US (occurrence: US)
  Receive Date: 20210901
  Receipt Date: 20210922
  Transmission Date: 20211014
  Serious: No
  Sender: FDA-Public Use
  Company Number: US-ALLERGAN-2130743US

PATIENT
  Sex: Female

DRUGS (4)
  1. REFRESH P.M. [Suspect]
     Active Substance: MINERAL OIL\PETROLATUM
     Indication: POSTOPERATIVE CARE
     Dosage: AS NEEDED
     Route: 047
     Dates: start: 20210818
  2. REFRESH OPTIVE SENSITIVE [Concomitant]
     Active Substance: CARBOXYMETHYLCELLULOSE SODIUM\GLYCERIN
     Indication: POSTOPERATIVE CARE
     Dosage: UNK
     Dates: start: 20210818
  3. ERYTHROMYCIN [ERYTHROMYCIN ESTOLATE] [Concomitant]
     Indication: POSTOPERATIVE CARE
  4. BAUSH AND LOMB VITAMIN PRODUCT [Concomitant]
     Indication: MACULAR DEGENERATION

REACTIONS (1)
  - Vision blurred [Recovered/Resolved]

NARRATIVE: CASE EVENT DATE: 20210818
